FAERS Safety Report 25372313 (Version 3)
Quarter: 2025Q4

REPORT INFORMATION
  Report Type: Spontaneous
  Country: GB (occurrence: None)
  Receive Date: 20250529
  Receipt Date: 20251013
  Transmission Date: 20260117
  Serious: Yes (Other)
  Sender: ORGANON
  Company Number: GB-ORGANON-O2505GBR003945

PATIENT
  Age: 17 Year
  Sex: Female
  Weight: 64 kg

DRUGS (1)
  1. NEXPLANON [Suspect]
     Active Substance: ETONOGESTREL
     Indication: Contraception
     Dosage: 1 IMPLANT IN LEFT UPPER ARM

REACTIONS (7)
  - Pregnancy with implant contraceptive [Recovered/Resolved]
  - Unintended pregnancy [Recovered/Resolved]
  - Abortion induced [Unknown]
  - Implant site infection [Unknown]
  - Complication associated with device [Recovered/Resolved with Sequelae]
  - Device expulsion [Recovered/Resolved with Sequelae]
  - Product dose omission issue [Unknown]

NARRATIVE: CASE EVENT DATE: 20240722
